FAERS Safety Report 6535423-8 (Version None)
Quarter: 2009Q4

REPORT INFORMATION
  Report Type: 
  Country: None (occurrence: None)
  Receive Date: 20091228
  Receipt Date: 20090430
  Transmission Date: 20100525
  Serious: Yes (Life-Threatening, Hospitalization)
  Sender: FDA-Public Use
  Company Number: US-002830

PATIENT
  Age: 40 Year
  Sex: Female
  Weight: 92 kg

DRUGS (2)
  1. MULTIHANCE [Suspect]
     Indication: HEADACHE
     Dosage: 10ML QD INTRAVENOUS
     Route: 042
     Dates: start: 20090403, end: 20090403
  2. MULTIHANCE [Suspect]
     Indication: NUCLEAR MAGNETIC RESONANCE IMAGING BRAIN
     Dosage: 10ML QD INTRAVENOUS
     Route: 042
     Dates: start: 20090403, end: 20090403

REACTIONS (1)
  - HYPERSENSITIVITY [None]
